FAERS Safety Report 18335845 (Version 1)
Quarter: 2020Q4

REPORT INFORMATION
  Report Type: Spontaneous
  Country: US (occurrence: US)
  Receive Date: 20201001
  Receipt Date: 20201001
  Transmission Date: 20210113
  Serious: No
  Sender: FDA-Public Use
  Company Number: US-PFIZER INC-2020377780

PATIENT
  Age: 46 Year
  Sex: Female

DRUGS (1)
  1. IBRANCE [Suspect]
     Active Substance: PALBOCICLIB
     Indication: MIGRAINE
     Dosage: 125 MG, CYCLIC (125MG D FOR 21D THEN 7D OFF)
     Dates: start: 20200811

REACTIONS (7)
  - Headache [Unknown]
  - Nausea [Unknown]
  - Product use in unapproved indication [Unknown]
  - Fatigue [Unknown]
  - Off label use [Unknown]
  - Arthralgia [Unknown]
  - Asthenia [Unknown]
